FAERS Safety Report 21134069 (Version 4)
Quarter: 2022Q4

REPORT INFORMATION
  Report Type: Report from Study
  Country: US (occurrence: US)
  Receive Date: 20220726
  Receipt Date: 20221019
  Transmission Date: 20230112
  Serious: No
  Sender: FDA-Public Use
  Company Number: US-NOVARTISTESTPH-NVSC2022US168993

PATIENT
  Sex: Female

DRUGS (1)
  1. KESIMPTA [Suspect]
     Active Substance: OFATUMUMAB
     Indication: Product used for unknown indication
     Dosage: UNK
     Route: 065
     Dates: start: 20220617

REACTIONS (6)
  - Fatigue [Unknown]
  - Myalgia [Unknown]
  - Arthralgia [Unknown]
  - Nasopharyngitis [Unknown]
  - Nasal congestion [Unknown]
  - Inappropriate schedule of product administration [Not Recovered/Not Resolved]
